FAERS Safety Report 5614376-0 (Version None)
Quarter: 2008Q1

REPORT INFORMATION
  Report Type: 
  Country: None (occurrence: None)
  Receive Date: 20080130
  Receipt Date: 20071227
  Transmission Date: 20080703
  Serious: Yes (Hospitalization)
  Sender: FDA-Public Use
  Company Number: 02100-JPN-08-0036

PATIENT
  Age: 66 Year
  Sex: Male

DRUGS (13)
  1. PLETAAL (CILOSTAZOL) TABLET [Suspect]
     Indication: ARTERIOSCLEROSIS OBLITERANS
     Dosage: 200 MG
     Route: 048
     Dates: start: 20070130
  2. CS-866 (CS-866) UNKNOWN [Suspect]
     Indication: DIABETIC NEPHROPATHY
     Dosage: 20 MG ORAL
     Route: 048
     Dates: start: 20051115
  3. CS-866 (CS-866) UNKNOWN [Suspect]
     Indication: TYPE 2 DIABETES MELLITUS
     Dosage: 20 MG ORAL
     Route: 048
     Dates: start: 20051115
  4. PLACEBO (PLACEBO) [Suspect]
     Indication: DIABETIC NEPHROPATHY
     Dosage: 1 DF ORAL
     Route: 048
     Dates: start: 20051115, end: 20061221
  5. PLACEBO (PLACEBO) [Suspect]
     Indication: TYPE 2 DIABETES MELLITUS
     Dosage: 1 DF ORAL
     Route: 048
     Dates: start: 20051115, end: 20061221
  6. BAYASPIRIN (ACETYLSALICYLIC ACID) TABLET [Suspect]
     Indication: ARTERIOSCLEROSIS OBLITERANS
     Dosage: 100 MG ORAL
     Route: 048
     Dates: start: 20061221, end: 20071122
  7. WARFARIN (WARFARIN) TABLET [Suspect]
     Indication: ARTERIOSCLEROSIS OBLITERANS
     Dosage: UNKNOWN; ORAL
     Route: 048
     Dates: start: 20061221, end: 20071122
  8. ADALAT L (NIFEDIPINE) TABLET [Concomitant]
  9. RENIVANCE (ENALAPRIL MALEATE) TABLET [Concomitant]
  10. CARVEDILOL [Concomitant]
  11. NORVASC [Concomitant]
  12. GLYBURIDE [Concomitant]
  13. PIMENOL (PIRMENOL HYDROCHLORIDE) [Concomitant]

REACTIONS (5)
  - ARTERIOSCLEROSIS OBLITERANS [None]
  - HAEMORRHAGE [None]
  - HAEMOTHORAX [None]
  - PAIN [None]
  - ROAD TRAFFIC ACCIDENT [None]
